FAERS Safety Report 7462167-0 (Version None)
Quarter: 2011Q2

REPORT INFORMATION
  Report Type: 
  Country: None (occurrence: None)
  Receive Date: 20110506
  Receipt Date: 20110329
  Transmission Date: 20111010
  Serious: Yes (Hospitalization)
  Sender: FDA-Public Use
  Company Number: US-BAYER-201041430NA

PATIENT
  Age: 31 Year
  Sex: Female
  Weight: 153.74 kg

DRUGS (14)
  1. YASMIN [Suspect]
     Indication: ACNE
     Dosage: UNK
     Route: 048
     Dates: start: 20050601, end: 20050901
  2. PREVPAC [Concomitant]
  3. ALTACE [Concomitant]
  4. BIATA [Concomitant]
     Route: 048
  5. NEXIUM [Concomitant]
  6. INSULIN [Concomitant]
     Route: 058
  7. METFORMIN [Concomitant]
  8. AVANDAMET [Concomitant]
  9. RESPIRATORY SYSTEM [Concomitant]
  10. YAZ [Suspect]
     Indication: ACNE
     Dosage: UNK
     Route: 048
     Dates: start: 20030101, end: 20050101
  11. AVANDIA [Concomitant]
  12. DROSPIRENONE AND ETHINYL ESTRADIOL [Suspect]
     Indication: ACNE
     Route: 048
  13. HUMALOG [Concomitant]
  14. PREVACID [Concomitant]
     Route: 048

REACTIONS (3)
  - PAIN [None]
  - PULMONARY EMBOLISM [None]
  - INJURY [None]
